FAERS Safety Report 8589760-6 (Version None)
Quarter: 2012Q3

REPORT INFORMATION
  Report Type: 
  Country: None (occurrence: None)
  Receive Date: 20120731
  Receipt Date: 20120723
  Transmission Date: 20120928
  Serious: Yes (Other)
  Sender: FDA-Public Use
  Company Number: AUR-APL-2012-03189

PATIENT
  Age: 39 Year
  Sex: Male
  Weight: 64 kg

DRUGS (2)
  1. LAMOTRIGINE [Suspect]
     Indication: EPILEPSY
     Dosage: 75 MG (75 MG, 1 IN 1 D)
     Dates: start: 20080101
  2. LORATADINE [Concomitant]

REACTIONS (11)
  - MALAISE [None]
  - DERMATITIS ALLERGIC [None]
  - CONVULSION [None]
  - EAR DISCOMFORT [None]
  - SOMNOLENCE [None]
  - RASH PRURITIC [None]
  - FOOD ALLERGY [None]
  - FEELING HOT [None]
  - ERYTHEMA [None]
  - SLOW RESPONSE TO STIMULI [None]
  - FATIGUE [None]
